FAERS Safety Report 8965565 (Version 2)
Quarter: 2013Q3

REPORT INFORMATION
  Report Type: Spontaneous
  Country: IT (occurrence: None)
  Receive Date: 20121205
  Receipt Date: 20130708
  Transmission Date: 20140515
  Serious: Yes (Life-Threatening)
  Sender: FDA-Public Use
  Company Number: 1504651

PATIENT
  Age: 76 Year
  Sex: Male

DRUGS (4)
  1. PACLITAXEL [Suspect]
     Indication: CHEMOTHERAPY
     Dosage: (TOTAL)
     Route: 042
     Dates: start: 20120905, end: 20120905
  2. CARBOPLATINO [Suspect]
     Indication: CHEMOTHERAPY
     Dosage: (TOTAL)
     Route: 042
     Dates: start: 20120905, end: 20120905
  3. RYTMONORM [Concomitant]
  4. IMODIUM [Concomitant]

REACTIONS (2)
  - Cerebrovascular accident [None]
  - Blood pressure increased [None]
